FAERS Safety Report 4347824-7 (Version None)
Quarter: 2004Q2

REPORT INFORMATION
  Report Type: 
  Country: None (occurrence: None)
  Receive Date: 20040422
  Receipt Date: 20040402
  Transmission Date: 20050107
  Serious: Yes (Other)
  Sender: FDA-Public Use
  Company Number: 205740

PATIENT
  Age: 19 Year
  Sex: Male
  Weight: 69.8 kg

DRUGS (6)
  1. XOLAIR [Suspect]
     Indication: ASTHMA
     Dosage: 300 MG, SINGLE, SUBCUTANEOUS
     Route: 058
     Dates: start: 20040327, end: 20040327
  2. FLOVENT [Concomitant]
  3. ALBUTEROL (ALBUTEROL, ALBUTEROL SULFATE) [Concomitant]
  4. IMMUNOTHERAPY (UNK ANTIGEN) (ALLERGENIC EXTRACTS) [Concomitant]
  5. XOPENEX [Concomitant]
  6. ADVAIR DISKUS [Concomitant]

REACTIONS (3)
  - INJECTION SITE ERYTHEMA [None]
  - RASH ERYTHEMATOUS [None]
  - SWELLING FACE [None]
